FAERS Safety Report 5586356-5 (Version None)
Quarter: 2008Q1

REPORT INFORMATION
  Report Type: 
  Country: None (occurrence: None)
  Receive Date: 20080107
  Receipt Date: 20080107
  Transmission Date: 20080703
  Serious: Yes (Hospitalization)
  Sender: FDA-Public Use
  Company Number: None

PATIENT
  Sex: Female
  Weight: 50.1 kg

DRUGS (6)
  1. VINCRISTINE SULFATE [Suspect]
     Dosage: 8 MG
  2. CYCLOPHOSPHAMIDE [Suspect]
     Dosage: 3180 MG
  3. CYTARABINE [Suspect]
     Dosage: 1212 MG
  4. MERCAPTOPURINE [Suspect]
     Dosage: 2800 MG
  5. METHOTREXATE [Suspect]
     Dosage: 60 MG
  6. PEG-L-ASPARAGINASE (K-H) [Suspect]
     Dosage: 7875 IU

REACTIONS (1)
  - PAIN IN EXTREMITY [None]
